FAERS Safety Report 18556547 (Version 4)
Quarter: 2021Q1

REPORT INFORMATION
  Report Type: Report from Study
  Country: US (occurrence: US)
  Receive Date: 20201128
  Receipt Date: 20210331
  Transmission Date: 20210419
  Serious: Yes (Other)
  Sender: FDA-Public Use
  Company Number: US-SHIRE-US202017859

PATIENT
  Sex: Female

DRUGS (1)
  1. HUMAN NORMAL IMMUNOGLOBULIN; LIQUID [Suspect]
     Active Substance: HUMAN IMMUNOGLOBULIN G
     Indication: PRIMARY IMMUNODEFICIENCY SYNDROME
     Dosage: 40 GRAM
     Route: 042

REACTIONS (25)
  - Illness [Unknown]
  - Arthralgia [Unknown]
  - Rheumatoid arthritis [Unknown]
  - Inflammation [Unknown]
  - Product dose omission issue [Unknown]
  - Von Willebrand^s disease [Unknown]
  - Upper respiratory tract infection [Unknown]
  - Insomnia [Unknown]
  - Spinal stenosis [Unknown]
  - Insurance issue [Unknown]
  - Pain [Unknown]
  - Spinal disorder [Unknown]
  - Retinal detachment [Unknown]
  - Pyrexia [Not Recovered/Not Resolved]
  - Tooth fracture [Unknown]
  - Therapy interrupted [Unknown]
  - Nerve root injury [Unknown]
  - Osteoarthritis [Unknown]
  - Arthritis [Unknown]
  - Dermatitis contact [Unknown]
  - Feeling abnormal [Not Recovered/Not Resolved]
  - Fatigue [Unknown]
  - Vocal cord cyst [Unknown]
  - Unevaluable event [Unknown]
  - Muscle strain [Unknown]
